FAERS Safety Report 9292289 (Version 2)
Quarter: 2013Q2

REPORT INFORMATION
  Report Type: Report from Study
  Country: CL (occurrence: CL)
  Receive Date: 20130516
  Receipt Date: 20130517
  Transmission Date: 20140414
  Serious: Yes (Other)
  Sender: FDA-Public Use
  Company Number: PHHY2013CL048369

PATIENT
  Sex: 0

DRUGS (1)
  1. TAREG D [Suspect]
     Indication: BLOOD PRESSURE ABNORMAL
     Dosage: UNK MG, UNK
     Route: 048

REACTIONS (3)
  - Depression [Not Recovered/Not Resolved]
  - Feeling abnormal [Unknown]
  - Headache [Unknown]
